FAERS Safety Report 17765963 (Version 2)
Quarter: 2022Q3

REPORT INFORMATION
  Report Type: Other
  Country: CA (occurrence: None)
  Receive Date: 20200511
  Receipt Date: 20220715
  Transmission Date: 20221026
  Serious: Yes (Other)
  Sender: FDA-Public Use
  Company Number: CA-ROCHE-2451161

PATIENT
  Age: 27 Year
  Sex: Female

DRUGS (2)
  1. OCREVUS [Suspect]
     Active Substance: OCRELIZUMAB
     Indication: Relapsing-remitting multiple sclerosis
     Dosage: 300 MG AT DAY 0 AND 14, THEN 600 MG EVERY 6 MONTH
     Route: 042
     Dates: start: 20191015
  2. PREGABALIN [Concomitant]
     Active Substance: PREGABALIN
     Indication: Pain

REACTIONS (6)
  - Pneumonia [Unknown]
  - Infusion related reaction [Recovering/Resolving]
  - Cough [Not Recovered/Not Resolved]
  - Influenza [Unknown]
  - Bronchitis [Unknown]
  - Sinusitis [Unknown]

NARRATIVE: CASE EVENT DATE: 20191015
